FAERS Safety Report 4377450-5 (Version None)
Quarter: 2004Q2

REPORT INFORMATION
  Report Type: 
  Country: None (occurrence: None)
  Receive Date: 20040615
  Receipt Date: 20040604
  Transmission Date: 20050107
  Serious: Yes (Hospitalization, Other)
  Sender: FDA-Public Use
  Company Number: FR-BRISTOL-MYERS SQUIBB COMPANY-12605861

PATIENT
  Age: 77 Year
  Sex: Male

DRUGS (4)
  1. ELISOR TABS 20 MG [Suspect]
     Indication: HYPERCHOLESTEROLAEMIA
     Route: 048
  2. PREVISCAN [Interacting]
     Indication: MYOCARDIAL ISCHAEMIA
     Route: 048
     Dates: end: 20040301
  3. CORDARONE [Interacting]
     Route: 048
  4. CORVASAL [Concomitant]
     Dosage: 3 TABLETS/DAY

REACTIONS (3)
  - COLON NEOPLASM [None]
  - DRUG INTERACTION [None]
  - RECTAL HAEMORRHAGE [None]
